FAERS Safety Report 6998612 (Version 3)
Quarter: 2018Q4

REPORT INFORMATION
  Report Type: Spontaneous
  Country: JP (occurrence: JP)
  Receive Date: 20090520
  Receipt Date: 20181219
  Transmission Date: 20190205
  Serious: Yes (Death, Hospitalization, Other)
  Sender: FDA-Public Use
  Company Number: PHHY2009JP06924

PATIENT
  Age: 67 Year
  Sex: Male

DRUGS (4)
  1. FUNGUARD [Concomitant]
     Active Substance: MICAFUNGIN SODIUM
     Indication: PRODUCT USED FOR UNKNOWN INDICATION
     Dosage: UNK
     Route: 065
  2. MAXIPIME [Concomitant]
     Active Substance: CEFEPIME HYDROCHLORIDE
     Indication: PYREXIA
     Dosage: UNK
     Route: 065
  3. DESFERAL [Suspect]
     Active Substance: DEFEROXAMINE MESYLATE
     Indication: REFRACTORY CYTOPENIA WITH UNILINEAGE DYSPLASIA
  4. DESFERAL [Suspect]
     Active Substance: DEFEROXAMINE MESYLATE
     Indication: MYELODYSPLASTIC SYNDROME
     Dosage: 250 MG, QD
     Route: 030
     Dates: start: 20070514, end: 20080716

REACTIONS (11)
  - Leukaemia [Fatal]
  - Metastases to liver [Fatal]
  - Metastases to kidney [Fatal]
  - Disseminated intravascular coagulation [Fatal]
  - Metastases to lung [Fatal]
  - Mucormycosis [Fatal]
  - Pulmonary mass [Unknown]
  - Disease progression [Fatal]
  - Abdominal pain [Unknown]
  - Pyrexia [Unknown]
  - Pneumonia [Unknown]

NARRATIVE: CASE EVENT DATE: 200807
